FAERS Safety Report 4373546-2 (Version None)
Quarter: 2004Q1

REPORT INFORMATION
  Report Type: 
  Country: None (occurrence: None)
  Receive Date: 20040305
  Receipt Date: 20031106
  Transmission Date: 20041129
  Serious: Yes (Other)
  Sender: FDA-Public Use
  Company Number: 2003UW14618

PATIENT
  Age: 85 Year
  Sex: Male

DRUGS (6)
  1. CRESTOR [Suspect]
     Dosage: 10 MG PO
     Route: 048
     Dates: start: 20031031
  2. TRICOR [Concomitant]
  3. UNSPECIFIED [Concomitant]
  4. TIAZAC [Concomitant]
  5. ZYRTEC [Concomitant]
  6. BETOPTIC [Concomitant]

REACTIONS (3)
  - BLEPHARITIS [None]
  - EYE PRURITUS [None]
  - EYE SWELLING [None]
